FAERS Safety Report 26208424 (Version 1)
Quarter: 2025Q4

REPORT INFORMATION
  Report Type: Spontaneous
  Country: US (occurrence: None)
  Receive Date: 20251226
  Receipt Date: 20251226
  Transmission Date: 20260118
  Serious: Yes (Other)
  Sender: FDA-CTU
  Company Number: None

PATIENT
  Sex: Female

DRUGS (10)
  1. RINVOQ [Suspect]
     Active Substance: UPADACITINIB
     Indication: Polyarthritis
     Dosage: FREQUENCY : DAILY;
     Route: 048
     Dates: start: 20231130
  2. CYCLOBENZAPRINE HYDROCHLORIDE [Concomitant]
     Active Substance: CYCLOBENZAPRINE HYDROCHLORIDE
  3. ESTRADIOL MICRONIZED [Concomitant]
  4. FIBER POWDER POW [Concomitant]
  5. INDERAL LA CAP 60MG [Concomitant]
  6. STOOL SOFTNR CAP 100MG [Concomitant]
  7. VITAMIN B12 TAB 100MCG [Concomitant]
  8. VITAMIN D CAP 400UNIT [Concomitant]
  9. WELLBUTRIN TAB 100MG SR [Concomitant]
  10. ZINC TAB 50MG [Concomitant]

REACTIONS (1)
  - Spinal operation [None]
